FAERS Safety Report 7952599-6 (Version None)
Quarter: 2011Q4

REPORT INFORMATION
  Report Type: 
  Country: None (occurrence: None)
  Receive Date: 20111201
  Receipt Date: 20111125
  Transmission Date: 20120403
  Serious: Yes (Death, Hospitalization, Disabling)
  Sender: FDA-Public Use
  Company Number: US-CELGENEUS-163-21880-11033260

PATIENT
  Sex: Male
  Weight: 56.16 kg

DRUGS (50)
  1. ALBUTEROL [Concomitant]
     Dosage: 2 PUFFS
     Route: 048
  2. SODIUM CHLORIDE [Concomitant]
     Dosage: 10 MILLILITER
     Route: 065
  3. AZITHROMYCIN [Concomitant]
     Route: 065
  4. SPIRIVA [Concomitant]
     Route: 065
  5. VORICONAZOLE [Concomitant]
     Dosage: 1
     Route: 048
  6. POTASSIUM CHLORIDE [Concomitant]
     Dosage: 20MEQ 50ML BAG
     Route: 041
  7. VANCOMYCIN [Concomitant]
     Dosage: 125 MILLIGRAM
     Route: 048
  8. CEPACOL [Concomitant]
     Dosage: 1
     Route: 048
  9. NICOTINE [Concomitant]
     Dosage: 1
     Route: 062
  10. REVLIMID [Suspect]
     Dosage: 25 MILLIGRAM
     Route: 048
     Dates: start: 20110201, end: 20110302
  11. ALLOPURINOL [Concomitant]
     Dosage: 200 MILLIGRAM
     Route: 048
  12. LASIX [Concomitant]
     Dosage: 20 MILLIGRAM
     Route: 048
  13. DIAZEPAM [Concomitant]
     Dosage: 2 MILLIGRAM
     Route: 048
  14. SINGULAIR [Concomitant]
     Indication: SEASONAL ALLERGY
     Dosage: 2 MILLIGRAM
     Route: 048
  15. PREDNISONE TAB [Concomitant]
     Dosage: 10 MILLIGRAM
     Route: 048
  16. POTASSIUM CHLORIDE [Concomitant]
     Dosage: 20 MILLIEQUIVALENTS
     Route: 048
  17. ACIDOPHILUS [Concomitant]
     Dosage: 1
     Route: 048
  18. MIRTAZAPINE [Concomitant]
     Dosage: 1
     Route: 048
  19. MAGNESIUM SULFATE [Concomitant]
     Dosage: 1-4G
     Route: 041
  20. MULTI-VITAMINS [Concomitant]
     Dosage: 1
     Route: 048
  21. COMPAZINE [Concomitant]
     Dosage: 10 MILLIGRAM
     Route: 048
  22. FLOVENT [Concomitant]
     Dosage: 2 PUFFS
     Route: 055
  23. GABAPENTIN [Concomitant]
     Dosage: 200 MILLIGRAM
     Route: 048
  24. SINGULAIR [Concomitant]
     Dosage: 1
     Route: 048
  25. MYCOSTATIN [Concomitant]
     Dosage: 100000 UNIT/GM
     Route: 065
  26. PREDNISONE TAB [Concomitant]
     Dosage: 60 MILLIGRAM
     Route: 048
  27. MOXIFLOXACIN [Concomitant]
     Dosage: 400 MILLIGRAM
     Route: 048
  28. FLUTICASONE PROPIONATE [Concomitant]
     Route: 055
  29. MOM [Concomitant]
     Dosage: 30ML
     Route: 048
  30. REVLIMID [Suspect]
     Indication: MULTIPLE MYELOMA
     Dosage: 10 MILLIGRAM
     Route: 048
     Dates: start: 20090901
  31. VALTREX [Concomitant]
     Dosage: 500 MILLIGRAM
     Route: 048
  32. OXYCODONE HCL [Concomitant]
     Dosage: 5-10MG
     Route: 048
  33. RED BLOOD CELLS [Concomitant]
     Dosage: 2 UNITS
     Route: 048
     Dates: start: 20110402, end: 20110402
  34. RESTORIL [Concomitant]
     Dosage: 15 MILLIGRAM
     Route: 048
  35. IPRATROPIUM BROMIDE [Concomitant]
     Dosage: 18-103MCG
     Route: 065
  36. IPRATROPIUM BROMIDE [Concomitant]
     Dosage: 0.5MG
     Route: 055
  37. BACTRIM DS [Concomitant]
     Dosage: 800-160MG
     Route: 048
  38. ASPIRIN [Concomitant]
     Dosage: 1
     Route: 048
  39. MORPHINE SULFATE [Concomitant]
     Dosage: 15 MILLIGRAM
     Route: 048
  40. CIPROFLOXACIN [Concomitant]
     Route: 065
  41. DOCUSATE [Concomitant]
     Dosage: 100 MILLIGRAM
     Route: 048
  42. AMBIEN [Concomitant]
     Dosage: 5-10MG
     Route: 048
  43. DEXAMETHASONE [Concomitant]
     Dosage: 4 MILLIGRAM
     Route: 048
  44. SENNA [Concomitant]
     Indication: CONSTIPATION
     Dosage: 1-2
     Route: 048
  45. ALLOPURINOL [Concomitant]
     Dosage: 100 MILLIGRAM
     Route: 048
  46. MYCOSTATIN [Concomitant]
     Dosage: 100,000 UNITS
     Route: 048
  47. NYSTATIN [Concomitant]
     Dosage: 100000 UNITS
     Route: 048
  48. HEPARIN [Concomitant]
     Dosage: 3ML 10 UNITS/ML
     Route: 065
  49. ATIVAN [Concomitant]
     Dosage: 1 MILLIGRAM
     Route: 041
  50. ATIVAN [Concomitant]
     Dosage: 1 MILLIGRAM
     Route: 048

REACTIONS (7)
  - NEUTROPENIA [None]
  - LOBAR PNEUMONIA [None]
  - LUNG ABSCESS [None]
  - THROMBOCYTOPENIA [None]
  - ORGANISING PNEUMONIA [None]
  - MULTIPLE MYELOMA [None]
  - CHRONIC OBSTRUCTIVE PULMONARY DISEASE [None]
